FAERS Safety Report 4715824-0 (Version None)
Quarter: 2005Q3

REPORT INFORMATION
  Report Type: 
  Country: None (occurrence: None)
  Receive Date: 20050718
  Receipt Date: 20050712
  Transmission Date: 20060218
  Serious: Yes (Hospitalization)
  Sender: FDA-Public Use
  Company Number: 2005UW10303

PATIENT
  Age: 17116 Day
  Sex: Female
  Weight: 76.2 kg

DRUGS (9)
  1. SEROQUEL [Suspect]
     Route: 048
     Dates: start: 20050625, end: 20050625
  2. SEROQUEL [Suspect]
     Route: 048
     Dates: start: 20040715, end: 20050406
  3. RISPERIDONE [Suspect]
     Indication: BIPOLAR DISORDER
     Route: 030
     Dates: start: 20050316
  4. LITHIUM [Concomitant]
     Route: 048
     Dates: start: 20040715
  5. DEPAKOTE [Concomitant]
     Route: 048
     Dates: start: 20050307
  6. PREMARIN [Concomitant]
     Route: 048
     Dates: start: 19980101
  7. LEVOTHROID [Concomitant]
     Route: 048
     Dates: start: 19880101
  8. FLEXERIL [Concomitant]
     Dates: start: 20010101
  9. LUNESTA [Concomitant]
     Dates: start: 20050526

REACTIONS (2)
  - ALCOHOL USE [None]
  - DISORIENTATION [None]
